FAERS Safety Report 16323385 (Version 1)
Quarter: 2019Q2

REPORT INFORMATION
  Report Type: Spontaneous
  Country: US (occurrence: US)
  Receive Date: 20190517
  Receipt Date: 20190517
  Transmission Date: 20190711
  Serious: Yes (Other)
  Sender: FDA-Public Use
  Company Number: US-SA-2019SA131600

PATIENT
  Age: 39 Year
  Sex: Male

DRUGS (2)
  1. LEMTRADA [Suspect]
     Active Substance: ALEMTUZUMAB
     Dosage: UNK
     Route: 041
  2. LEMTRADA [Suspect]
     Active Substance: ALEMTUZUMAB
     Dosage: UNK
     Route: 041

REACTIONS (7)
  - Adrenal insufficiency [Unknown]
  - Mental status changes [Unknown]
  - Encephalitis [Unknown]
  - Organ failure [Unknown]
  - Seizure [Unknown]
  - Meningitis [Unknown]
  - Neck pain [Unknown]
